FAERS Safety Report 11968804 (Version 1)
Quarter: 2016Q1

REPORT INFORMATION
  Report Type: Spontaneous
  Country: DE (occurrence: DE)
  Receive Date: 20160128
  Receipt Date: 20160128
  Transmission Date: 20160526
  Serious: Yes (Hospitalization, Other)
  Sender: FDA-Public Use
  Company Number: DE-AUROBINDO-AUR-APL-2016-00401

PATIENT
  Age: 26 Year
  Sex: Female
  Weight: 90 kg

DRUGS (8)
  1. EUTHYROX [Concomitant]
     Active Substance: LEVOTHYROXINE SODIUM
     Indication: AUTOIMMUNE THYROIDITIS
     Dosage: 200 ?G, DAILY
     Route: 048
     Dates: start: 20150105, end: 20150915
  2. AMITRIPTYLINE [Suspect]
     Active Substance: AMITRIPTYLINE
     Indication: DEPRESSION
     Dosage: 75 MG, DAILY
     Route: 048
     Dates: start: 20150105, end: 20150915
  3. THYBON [Concomitant]
     Indication: AUTOIMMUNE THYROIDITIS
     Dosage: 20 ?G, DAILY
     Route: 048
     Dates: start: 20150105, end: 20150915
  4. CITALOPRAM [Suspect]
     Active Substance: CITALOPRAM HYDROBROMIDE
     Indication: DEPRESSION
     Dosage: 40 MG, DAILY
     Route: 048
     Dates: start: 20150105, end: 20150915
  5. BUSCOPAN A [Concomitant]
     Indication: PAIN
     Dosage: 40 MG, DAILY
     Route: 040
     Dates: start: 20150915, end: 20150915
  6. FOLSAEURE [Concomitant]
     Active Substance: FOLIC ACID
     Indication: PROPHYLAXIS OF NEURAL TUBE DEFECT
     Route: 048
  7. METOPROLOL. [Suspect]
     Active Substance: METOPROLOL
     Indication: HYPERTENSION
     Dosage: 142.5 MG, DAILY
     Route: 048
     Dates: start: 20150105, end: 20150915
  8. MEPTID                             /00633901/ [Concomitant]
     Indication: PAIN
     Dosage: 100 MG, DAILY
     Route: 040
     Dates: start: 20150915, end: 20150915

REACTIONS (2)
  - Preterm premature rupture of membranes [Unknown]
  - Exposure during pregnancy [Unknown]
